FAERS Safety Report 4884689-9 (Version None)
Quarter: 2006Q1

REPORT INFORMATION
  Report Type: 
  Country: None (occurrence: None)
  Receive Date: 20060117
  Receipt Date: 20060104
  Transmission Date: 20060701
  Serious: Yes (Hospitalization, Other)
  Sender: FDA-Public Use
  Company Number: 2005036670

PATIENT
  Age: 65 Year
  Sex: Female

DRUGS (15)
  1. CELEBREX [Suspect]
     Indication: ARTHRITIS
     Dosage: 200 MG (200 MG, 1 IN 1 D), ORAL
     Route: 048
     Dates: start: 19990101, end: 19990223
  2. PENICILLIN [Suspect]
     Indication: ILL-DEFINED DISORDER
  3. ARTHROTEC [Concomitant]
  4. BENTYL [Concomitant]
  5. CLARITIN-D [Concomitant]
  6. COMBIVENT [Concomitant]
  7. DARVOCET-N 100 [Concomitant]
  8. DYAZIDE [Concomitant]
  9. ELAVIL [Concomitant]
  10. LOTENSIN [Concomitant]
  11. NASACORT [Concomitant]
  12. PREMARIN [Concomitant]
  13. PREVACID [Concomitant]
  14. TOPROL-XL [Concomitant]
  15. SYNTHROID [Concomitant]

REACTIONS (38)
  - ABDOMINAL PAIN [None]
  - ABDOMINAL PAIN LOWER [None]
  - ARTHRITIS [None]
  - BLOOD PRESSURE FLUCTUATION [None]
  - BODY HEIGHT ABNORMAL [None]
  - CHEST PAIN [None]
  - COUGH [None]
  - DIARRHOEA [None]
  - DRUG HYPERSENSITIVITY [None]
  - DYSPNOEA [None]
  - ESSENTIAL HYPERTENSION [None]
  - FATIGUE [None]
  - GASTROINTESTINAL HAEMORRHAGE [None]
  - GASTROOESOPHAGEAL REFLUX DISEASE [None]
  - GROIN PAIN [None]
  - HYPOAESTHESIA [None]
  - HYPOTHYROIDISM [None]
  - IRON DEFICIENCY ANAEMIA [None]
  - IRRITABLE BOWEL SYNDROME [None]
  - MALIGNANT URINARY TRACT NEOPLASM [None]
  - NEPHROLITHIASIS [None]
  - NEUROPATHY PERIPHERAL [None]
  - OSTEOARTHRITIS [None]
  - PAIN IN EXTREMITY [None]
  - POLYNEUROPATHY [None]
  - PRURITUS GENERALISED [None]
  - RASH GENERALISED [None]
  - RECTAL HAEMORRHAGE [None]
  - RENAL MASS [None]
  - RHINITIS ALLERGIC [None]
  - STATUS ASTHMATICUS [None]
  - SUPRAVENTRICULAR TACHYCARDIA [None]
  - SYNCOPE [None]
  - SYSTEMIC LUPUS ERYTHEMATOSUS [None]
  - UPPER RESPIRATORY TRACT INFECTION [None]
  - WEIGHT DECREASED [None]
  - WEIGHT FLUCTUATION [None]
  - WEIGHT INCREASED [None]
